FAERS Safety Report 10230243 (Version 1)
Quarter: 2014Q2

REPORT INFORMATION
  Report Type: Spontaneous
  Country: US (occurrence: None)
  Receive Date: 20140506
  Receipt Date: 20140506
  Transmission Date: 20141212
  Serious: Yes (Hospitalization, Other)
  Sender: FDA-Public Use
  Company Number: 1330483

PATIENT
  Sex: Male

DRUGS (2)
  1. AVASTIN (BEVACIZUMAB) [Suspect]
     Indication: ASTROCYTOMA
  2. AVASTIN (BEVACIZUMAB) [Suspect]
     Indication: ILL-DEFINED DISORDER

REACTIONS (3)
  - Pain in extremity [None]
  - Skin ulcer [None]
  - Vasculitis [None]
